FAERS Safety Report 7134690-X (Version None)
Quarter: 2010Q4

REPORT INFORMATION
  Report Type: 
  Country: None (occurrence: None)
  Receive Date: 20101130
  Receipt Date: 20101130
  Transmission Date: 20110411
  Serious: Yes (Life-Threatening)
  Sender: FDA-Public Use
  Company Number: None

PATIENT
  Age: 40 Year
  Sex: Male
  Weight: 70.3075 kg

DRUGS (1)
  1. DARVOCET [Suspect]
     Indication: HAND FRACTURE
     Dosage: 2  100MGS  4 A DAY
     Dates: start: 20100915, end: 20101001

REACTIONS (7)
  - DYSGEUSIA [None]
  - FEELING HOT [None]
  - GINGIVAL DISORDER [None]
  - HEART RATE ABNORMAL [None]
  - HOMICIDAL IDEATION [None]
  - LIP BLISTER [None]
  - SUICIDAL IDEATION [None]
